FAERS Safety Report 5506380-8 (Version None)
Quarter: 2007Q4

REPORT INFORMATION
  Report Type: 
  Country: None (occurrence: None)
  Receive Date: 20071101
  Receipt Date: 20071101
  Transmission Date: 20080405
  Serious: No
  Sender: FDA-Public Use
  Company Number: None

PATIENT
  Age: 23 Year
  Sex: Male
  Weight: 49.8957 kg

DRUGS (1)
  1. CIPROFLOXACIN HCL [Suspect]
     Indication: URINARY TRACT INFECTION
     Dosage: 500MG  TWICE A DAY  PO
     Route: 048
     Dates: start: 20071021, end: 20071022

REACTIONS (9)
  - ARTHRALGIA [None]
  - CRYING [None]
  - EYE PAIN [None]
  - HYPOAESTHESIA [None]
  - INITIAL INSOMNIA [None]
  - MIDDLE INSOMNIA [None]
  - PARAESTHESIA [None]
  - POOR QUALITY SLEEP [None]
  - TENDON PAIN [None]
